FAERS Safety Report 24119150 (Version 4)
Quarter: 2024Q3

REPORT INFORMATION
  Report Type: Spontaneous
  Country: MX (occurrence: MX)
  Receive Date: 20240722
  Receipt Date: 20240827
  Transmission Date: 20241017
  Serious: Yes (Hospitalization, Other)
  Sender: SERVIER
  Company Number: MX-SERVIER-S24008887

PATIENT

DRUGS (4)
  1. ONCASPAR [Suspect]
     Active Substance: PEGASPARGASE
     Indication: B precursor type acute leukaemia
     Dosage: UNK
     Route: 030
     Dates: start: 20240606
  2. ONCASPAR [Suspect]
     Active Substance: PEGASPARGASE
     Dosage: 2500 IU
     Route: 030
     Dates: start: 20240620
  3. CYTARABINE [Concomitant]
     Active Substance: CYTARABINE
     Indication: B precursor type acute leukaemia
     Dosage: UNK
     Route: 065
     Dates: start: 20240620
  4. VINCRISTINE [Concomitant]
     Active Substance: VINCRISTINE
     Indication: B precursor type acute leukaemia
     Dosage: UNK
     Route: 065
     Dates: start: 20240606

REACTIONS (13)
  - Seizure [Unknown]
  - Cerebral thrombosis [Unknown]
  - Neurological decompensation [Recovering/Resolving]
  - Tachycardia [Recovering/Resolving]
  - Hypotension [Recovering/Resolving]
  - Pallor [Recovering/Resolving]
  - Photophobia [Recovering/Resolving]
  - Metabolic acidosis [Recovering/Resolving]
  - Septic shock [Recovering/Resolving]
  - Pneumonia fungal [Recovering/Resolving]
  - Renal failure [Recovering/Resolving]
  - Cerebrovascular disorder [Unknown]
  - Device related infection [Unknown]

NARRATIVE: CASE EVENT DATE: 20240625
